FAERS Safety Report 12364921 (Version 1)
Quarter: 2016Q2

REPORT INFORMATION
  Report Type: Report from Study
  Country: US (occurrence: US)
  Receive Date: 20160513
  Receipt Date: 20160513
  Transmission Date: 20160815
  Serious: Yes (Hospitalization)
  Sender: FDA-Public Use
  Company Number: US-JNJFOC-20160510943

PATIENT
  Sex: Female

DRUGS (11)
  1. FLUOXETINE [Concomitant]
     Active Substance: FLUOXETINE HYDROCHLORIDE
  2. IMBRUVICA [Suspect]
     Active Substance: IBRUTINIB
     Indication: CHRONIC LYMPHOCYTIC LEUKAEMIA
     Route: 048
  3. LEVOTHYROXINE. [Concomitant]
     Active Substance: LEVOTHYROXINE
  4. ATORVASTATIN [Concomitant]
     Active Substance: ATORVASTATIN
  5. DIPHENHYDRAMINE. [Concomitant]
     Active Substance: DIPHENHYDRAMINE
  6. TYLENOL [Concomitant]
     Active Substance: ACETAMINOPHEN
  7. IMBRUVICA [Suspect]
     Active Substance: IBRUTINIB
     Indication: CHRONIC LYMPHOCYTIC LEUKAEMIA
     Route: 048
     Dates: start: 201603
  8. HUMALOG [Concomitant]
     Active Substance: INSULIN LISPRO
  9. FISH OIL [Concomitant]
     Active Substance: FISH OIL
  10. LANTUS [Concomitant]
     Active Substance: INSULIN GLARGINE
  11. PANTOPRAZOLE [Concomitant]
     Active Substance: PANTOPRAZOLE SODIUM

REACTIONS (5)
  - Biliary polyp [Recovering/Resolving]
  - Biliary tract infection [Recovering/Resolving]
  - Dehydration [Recovering/Resolving]
  - Asthenia [Recovering/Resolving]
  - Gait disturbance [Recovering/Resolving]

NARRATIVE: CASE EVENT DATE: 2016
